FAERS Safety Report 15308049 (Version 2)
Quarter: 2018Q3

REPORT INFORMATION
  Report Type: Report from Study
  Country: CN (occurrence: CN)
  Receive Date: 20180822
  Receipt Date: 20180914
  Transmission Date: 20181010
  Serious: Yes (Death)
  Sender: FDA-Public Use
  Company Number: CN-ROCHE-2171048

PATIENT
  Age: 63 Year
  Sex: Female
  Weight: 56 kg

DRUGS (9)
  1. EPIRUBICIN HYDROCHLORIDE. [Suspect]
     Active Substance: EPIRUBICIN HYDROCHLORIDE
     Indication: HER-2 POSITIVE BREAST CANCER
     Dosage: DATE OF MOST RECENT DOSE (137.7 MG) OF EPIRUBICIN HYDROCHLORIDE PRIOR TO ADVERSE EVENT ONSET: 13/JUL
     Route: 042
     Dates: start: 20170601, end: 20170713
  2. CAPECITABINE. [Concomitant]
     Active Substance: CAPECITABINE
     Route: 048
  3. TRASTUZUMAB. [Suspect]
     Active Substance: TRASTUZUMAB
     Dosage: MAINTANCE DOSE AS PER PROTOCOL?DATE OF MOST RECENT DOSE (342 MG) OF TRASTUZUMAB PRIOR TO AE ONSET: 0
     Route: 042
  4. PLACEBO [Suspect]
     Active Substance: UNSPECIFIED INGREDIENT
     Indication: HER-2 POSITIVE BREAST CANCER
     Dosage: MOST RECENT DOSE: 03/JAN/2018
     Route: 042
     Dates: start: 20170211
  5. TRASTUZUMAB. [Suspect]
     Active Substance: TRASTUZUMAB
     Indication: HER-2 POSITIVE BREAST CANCER
     Dosage: LOADING DOSE AS PER PROTOCOL
     Route: 042
     Dates: start: 20170211
  6. CYCLOPHOSPHAMIDE. [Suspect]
     Active Substance: CYCLOPHOSPHAMIDE
     Indication: HER-2 POSITIVE BREAST CANCER
     Dosage: DATE OF MOST RECENT DOSE (765 MG) OF CYCLOPHOSPHAMIDE PRIOR TO ADVERSE EVENT ONSET: 13/JUL/2017
     Route: 042
     Dates: start: 20170601, end: 20170713
  7. FLUOROURACIL. [Suspect]
     Active Substance: FLUOROURACIL
     Indication: HER-2 POSITIVE BREAST CANCER
     Dosage: DOSE AS PER PROTOCOL: 500?600 MG/M2 BY INTRAVENOUS (IV) INFUSION EVERY 3 WEEKS FOR THREE CYCLES (CYC
     Route: 042
     Dates: start: 20170601, end: 20170713
  8. LAPATINIB [Concomitant]
     Active Substance: LAPATINIB
     Route: 048
  9. DOCETAXEL. [Suspect]
     Active Substance: DOCETAXEL
     Indication: HER-2 POSITIVE BREAST CANCER
     Dosage: CYCLE 1?4, DOSE AS PER PROTOCOL?DATE OF MOST RECENT DOSE (113.25 MG) OF DOCETAXEL PRIOR TO ADVERSE E
     Route: 042
     Dates: start: 20170211

REACTIONS (1)
  - Sudden death [Fatal]

NARRATIVE: CASE EVENT DATE: 20180326
